FAERS Safety Report 10111112 (Version 1)
Quarter: 2014Q2

REPORT INFORMATION
  Report Type: Spontaneous
  Country: US (occurrence: None)
  Receive Date: 20140421
  Receipt Date: 20140421
  Transmission Date: 20141212
  Serious: No
  Sender: FDA-Public Use
  Company Number: AEGR000258

PATIENT
  Age: 58 Year
  Sex: Male
  Weight: 95.2 kg

DRUGS (12)
  1. JUXTAPID (LOMITAPIDE) CAPSULE, 5MG [Suspect]
     Indication: TYPE IIA HYPERLIPIDAEMIA
     Route: 048
     Dates: start: 201312
  2. LIVALO (PITAVASTATIN) TABLETS 2 MG [Concomitant]
  3. LEVOTHYROXINE (LEVOTHYROXINE) [Concomitant]
  4. METOPROLOL SUCCINATE (METOPROLOL SUCCINATE) [Concomitant]
  5. LOSARTAN (LOSARTAN POTASSIUM) [Concomitant]
  6. AMLODIPINE BESYLATE (AMLODIPINE BESILATE) [Concomitant]
  7. VIT E (TOCOPHEROL) [Concomitant]
  8. FISH OIL (FISH OIL) [Concomitant]
  9. COENZYME Q10 (UBIDECARENONE) [Concomitant]
  10. MELATONIN (MELATONIN) [Concomitant]
  11. VITAMIN D3 (COLECALCIFEROL) [Concomitant]
  12. ASA (ACETYLSALICYLIC ACID) [Concomitant]

REACTIONS (5)
  - Myalgia [None]
  - Migraine [None]
  - Pain in extremity [None]
  - Musculoskeletal stiffness [None]
  - Musculoskeletal pain [None]
